FAERS Safety Report 14404955 (Version 1)
Quarter: 2018Q1

REPORT INFORMATION
  Report Type: Spontaneous
  Country: US (occurrence: US)
  Receive Date: 20180118
  Receipt Date: 20180118
  Transmission Date: 20180509
  Serious: Yes (Other)
  Sender: FDA-Public Use
  Company Number: US-MALLINCKRODT-T201800138

PATIENT
  Age: 75 Year
  Sex: Female

DRUGS (1)
  1. OXYCODONE/ACETAMINOPHEN [Suspect]
     Active Substance: ACETAMINOPHEN\OXYCODONE HYDROCHLORIDE
     Indication: PRODUCT USED FOR UNKNOWN INDICATION
     Dosage: 5/325 MG (1.5-2 TABLETS PER DAY)
     Route: 065

REACTIONS (9)
  - Pharyngitis streptococcal [Unknown]
  - Functional gastrointestinal disorder [Unknown]
  - Constipation [Unknown]
  - Withdrawal syndrome [Unknown]
  - Pneumonia [Unknown]
  - Hyperhidrosis [Unknown]
  - Cold sweat [Unknown]
  - Drug dependence [Unknown]
  - Dyspnoea [Unknown]
